FAERS Safety Report 23744430 (Version 2)
Quarter: 2024Q2

REPORT INFORMATION
  Report Type: Report from Study
  Country: US (occurrence: US)
  Receive Date: 20240415
  Receipt Date: 20240420
  Transmission Date: 20240715
  Serious: Yes (Hospitalization, Other)
  Sender: FDA-Public Use
  Company Number: US-ABBVIE-5674143

PATIENT
  Sex: Male

DRUGS (2)
  1. DUOPA [Suspect]
     Active Substance: CARBIDOPA\LEVODOPA
     Indication: Parkinson^s disease
     Route: 050
     Dates: start: 20191114
  2. DUOPA [Suspect]
     Active Substance: CARBIDOPA\LEVODOPA

REACTIONS (11)
  - Sepsis [Unknown]
  - Dysphagia [Not Recovered/Not Resolved]
  - Cystitis [Unknown]
  - Chills [Unknown]
  - Asthenia [Unknown]
  - Dysstasia [Unknown]
  - Renal disorder [Unknown]
  - Osteomyelitis [Unknown]
  - Ulcer [Unknown]
  - Amputation [Unknown]
  - Diabetes mellitus [Not Recovered/Not Resolved]
